FAERS Safety Report 23531768 (Version 1)
Quarter: 2024Q1

REPORT INFORMATION
  Report Type: Spontaneous
  Country: US (occurrence: US)
  Receive Date: 20240216
  Receipt Date: 20240216
  Transmission Date: 20240410
  Serious: No
  Sender: FDA-Public Use
  Company Number: US-BAYER-2024A023347

PATIENT
  Age: 23 Year
  Sex: Male

DRUGS (1)
  1. GADAVIST [Suspect]
     Active Substance: GADOBUTROL
     Indication: Magnetic resonance imaging
     Dosage: 8 ML
     Route: 042

REACTIONS (4)
  - Contrast media allergy [None]
  - Urticaria [None]
  - Nausea [None]
  - Ocular hyperaemia [None]

NARRATIVE: CASE EVENT DATE: 20240209
